FAERS Safety Report 8951681 (Version 1)
Quarter: 2012Q4

REPORT INFORMATION
  Report Type: 
  Country: GB (occurrence: GB)
  Receive Date: 20121204
  Receipt Date: 20121204
  Transmission Date: 20130627
  Serious: Yes (Hospitalization)
  Sender: FDA-Public Use
  Company Number: PHHY2012GB109960

PATIENT
  Age: 78 Year
  Sex: Male
  Weight: 82.55 kg

DRUGS (3)
  1. BISOPROLOL [Suspect]
     Indication: LEFT VENTRICULAR DYSFUNCTION
     Dosage: 2.5 mg, QD
     Route: 048
     Dates: start: 20120920
  2. PERINDOPRIL [Suspect]
     Indication: HYPERTENSION
     Dosage: 4 mg, in morning
     Route: 048
     Dates: start: 20120920
  3. ACETYLSALICYLIC ACID [Suspect]
     Indication: ANTIPLATELET THERAPY
     Dosage: 75 mg, QD
     Route: 048
     Dates: start: 20120920

REACTIONS (1)
  - Abscess intestinal [Recovering/Resolving]
